FAERS Safety Report 14322964 (Version 1)
Quarter: 2017Q4

REPORT INFORMATION
  Report Type: Spontaneous
  Country: US (occurrence: US)
  Receive Date: 20171226
  Receipt Date: 20171226
  Transmission Date: 20180321
  Serious: Yes (Death)
  Sender: FDA-Public Use
  Company Number: US-INSYS THERAPEUTICS, INC-INS201712-000706

PATIENT
  Age: 26 Year
  Sex: Male

DRUGS (8)
  1. FENTANYL. [Suspect]
     Active Substance: FENTANYL
     Route: 048
     Dates: start: 2016
  2. ALCOHOL. [Suspect]
     Active Substance: ALCOHOL
     Indication: DRUG ABUSE
     Route: 051
     Dates: start: 2016
  3. DIPHENHYDRAMINE. [Suspect]
     Active Substance: DIPHENHYDRAMINE
     Indication: DRUG ABUSE
     Route: 051
     Dates: start: 2016
  4. DIPHENHYDRAMINE. [Suspect]
     Active Substance: DIPHENHYDRAMINE
     Route: 048
     Dates: start: 2016
  5. MORPHINE [Suspect]
     Active Substance: MORPHINE
     Indication: DRUG ABUSE
     Route: 051
     Dates: start: 2016
  6. MORPHINE [Suspect]
     Active Substance: MORPHINE
     Route: 048
     Dates: start: 2016
  7. FENTANYL. [Suspect]
     Active Substance: FENTANYL
     Indication: DRUG ABUSE
     Route: 051
     Dates: start: 2016
  8. ALCOHOL. [Suspect]
     Active Substance: ALCOHOL
     Route: 048
     Dates: start: 2016

REACTIONS (2)
  - Drug abuse [Fatal]
  - Incorrect route of drug administration [Unknown]

NARRATIVE: CASE EVENT DATE: 2016
